FAERS Safety Report 19269605 (Version 3)
Quarter: 2024Q4

REPORT INFORMATION
  Report Type: Spontaneous
  Country: US (occurrence: US)
  Receive Date: 20210518
  Receipt Date: 20241011
  Transmission Date: 20250114
  Serious: No
  Sender: GLAXOSMITHKLINE
  Company Number: US-GSKCCFUS-CASE-01052736_AE-62425

PATIENT
  Sex: Female

DRUGS (1)
  1. LAMICTAL [Suspect]
     Active Substance: LAMOTRIGINE
     Indication: Seizure
     Dosage: 125 MG, BID (AT NIGHT)
     Route: 048
     Dates: start: 2000

REACTIONS (11)
  - Anger [Not Recovered/Not Resolved]
  - Intermenstrual bleeding [Not Recovered/Not Resolved]
  - Dysmenorrhoea [Unknown]
  - Menstrual disorder [Unknown]
  - Blood test abnormal [Unknown]
  - Serum ferritin decreased [Unknown]
  - Pain in extremity [Unknown]
  - Tremor [Unknown]
  - Muscle spasms [Unknown]
  - Arthralgia [Unknown]
  - Myoclonus [Unknown]

NARRATIVE: CASE EVENT DATE: 20160101
